FAERS Safety Report 23071241 (Version 1)
Quarter: 2023Q4

REPORT INFORMATION
  Report Type: Spontaneous
  Country: JP (occurrence: JP)
  Receive Date: 20231016
  Receipt Date: 20231016
  Transmission Date: 20240109
  Serious: Yes (Other)
  Sender: FDA-Public Use
  Company Number: JP-ONO-2023JP025345

PATIENT
  Age: 65 Year
  Sex: Male

DRUGS (2)
  1. OPDIVO [Suspect]
     Active Substance: NIVOLUMAB
     Indication: Peritoneal mesothelioma malignant
     Dosage: UNK UNK, Q2W
     Route: 041
  2. OPDIVO [Suspect]
     Active Substance: NIVOLUMAB
     Dosage: UNK UNK, Q4W
     Route: 041

REACTIONS (3)
  - IgA nephropathy [Recovered/Resolved]
  - Rash [Unknown]
  - Off label use [Unknown]
